FAERS Safety Report 5746346-6 (Version None)
Quarter: 2008Q2

REPORT INFORMATION
  Report Type: 
  Country: None (occurrence: None)
  Receive Date: 20080520
  Receipt Date: 20080520
  Transmission Date: 20081010
  Serious: Yes (Hospitalization)
  Sender: FDA-Public Use
  Company Number: None

PATIENT
  Age: 53 Year
  Sex: Female
  Weight: 46.2669 kg

DRUGS (2)
  1. LAPATINIB           250MG           GLAXO SMITH KLEIN [Suspect]
     Indication: BREAST CANCER
     Dosage: 100MG          ONCE A DAY         PO
     Route: 048
     Dates: start: 20080314, end: 20080515
  2. METFORMIN HCL [Concomitant]

REACTIONS (4)
  - ASTHENIA [None]
  - DEHYDRATION [None]
  - DIARRHOEA [None]
  - MUSCULOSKELETAL CHEST PAIN [None]
